FAERS Safety Report 8209687-9 (Version None)
Quarter: 2012Q1

REPORT INFORMATION
  Report Type: 
  Country: None (occurrence: None)
  Receive Date: 20120314
  Receipt Date: 20120301
  Transmission Date: 20120608
  Serious: Yes (Hospitalization)
  Sender: FDA-Public Use
  Company Number: JP-MYLANLABS-2012S1004857

PATIENT
  Age: 56 Year
  Sex: Male

DRUGS (1)
  1. TETRACOSACTIDE [Suspect]
     Indication: ACTH STIMULATION TEST
     Dosage: 0.5 MG/DAY
     Route: 065

REACTIONS (1)
  - STUPOR [None]
